FAERS Safety Report 17048048 (Version 1)
Quarter: 2019Q4

REPORT INFORMATION
  Report Type: Spontaneous
  Country: US (occurrence: US)
  Receive Date: 20191018
  Receipt Date: 20191018
  Transmission Date: 20200122
  Serious: No
  Sender: FDA-Public Use
  Company Number: None

PATIENT
  Age: 75 Year
  Sex: Female
  Weight: 89.3 kg

DRUGS (2)
  1. CYTARABINE. [Suspect]
     Active Substance: CYTARABINE
     Dates: start: 20190831
  2. DAUNORUBICIN [Suspect]
     Active Substance: DAUNORUBICIN
     Dates: end: 20190718

REACTIONS (7)
  - Atrial flutter [None]
  - Rash [None]
  - Platelet count decreased [None]
  - Anaemia [None]
  - Febrile neutropenia [None]
  - Haemodialysis [None]
  - Acute kidney injury [None]
